FAERS Safety Report 6406236-2 (Version None)
Quarter: 2009Q4

REPORT INFORMATION
  Report Type: 
  Country: None (occurrence: None)
  Receive Date: 20091019
  Receipt Date: 20091005
  Transmission Date: 20100525
  Serious: Yes (Hospitalization)
  Sender: FDA-Public Use
  Company Number: PHHY2009MX42970

PATIENT
  Age: 65 Year
  Sex: Female

DRUGS (2)
  1. DIOVAN HCT [Suspect]
     Indication: HYPERTENSION
     Dosage: 1 TABLET (80 MG/12.5 MG) PER DAY
     Dates: start: 20080301, end: 20090928
  2. DIOVAN HCT [Suspect]
     Dosage: 1 TABLET (80 MG/12.5 MG) PER DAY
     Dates: start: 20091001

REACTIONS (2)
  - NEPHROLITHIASIS [None]
  - RENAL STONE REMOVAL [None]
